FAERS Safety Report 9209347 (Version 1)
Quarter: 2013Q2

REPORT INFORMATION
  Report Type: Spontaneous
  Country: US (occurrence: US)
  Receive Date: 20130404
  Receipt Date: 20130404
  Transmission Date: 20140414
  Serious: Yes (Other)
  Sender: FDA-Public Use
  Company Number: US-PFIZER INC-2013103231

PATIENT
  Sex: Female

DRUGS (2)
  1. PREMARIN [Suspect]
     Indication: HOT FLUSH
     Dosage: UNK
     Dates: start: 1974
  2. PREMARIN [Suspect]
     Indication: NIGHT SWEATS

REACTIONS (1)
  - Hearing impaired [Unknown]
